FAERS Safety Report 8565543-8 (Version None)
Quarter: 2012Q3

REPORT INFORMATION
  Report Type: 
  Country: None (occurrence: None)
  Receive Date: 20120803
  Receipt Date: 20120731
  Transmission Date: 20120928
  Serious: Yes (Life-Threatening, Hospitalization)
  Sender: FDA-Public Use
  Company Number: US-JNJFOC-20120713134

PATIENT
  Age: 85 Year
  Sex: Male
  Weight: 112.49 kg

DRUGS (7)
  1. XARELTO [Suspect]
     Route: 048
     Dates: start: 20120621
  2. XARELTO [Suspect]
     Route: 048
     Dates: start: 20120621
  3. COUMADIN [Concomitant]
  4. XARELTO [Suspect]
     Indication: ATRIAL FIBRILLATION
     Route: 048
     Dates: start: 20120531, end: 20120611
  5. ASPIRIN [Concomitant]
  6. XARELTO [Suspect]
     Indication: CEREBROVASCULAR ACCIDENT PROPHYLAXIS
     Route: 048
     Dates: start: 20120531, end: 20120611
  7. CARDIAC MEDICATION [Concomitant]

REACTIONS (2)
  - CARDIAC TAMPONADE [None]
  - PERICARDIAL EFFUSION [None]
